FAERS Safety Report 9374326 (Version 1)
Quarter: 2013Q2

REPORT INFORMATION
  Report Type: Spontaneous
  Country: US (occurrence: None)
  Receive Date: 20130627
  Receipt Date: 20130627
  Transmission Date: 20140414
  Serious: Yes (Other)
  Sender: FDA-Public Use
  Company Number: None

PATIENT
  Age: 1 Month
  Sex: Male

DRUGS (1)
  1. HUMIRA PFS 40 MG ABB VIE [Suspect]
     Indication: PSORIATIC ARTHROPATHY
     Route: 058
     Dates: start: 20130601, end: 20130604

REACTIONS (4)
  - Diarrhoea [None]
  - Abdominal pain upper [None]
  - Headache [None]
  - Fatigue [None]
